FAERS Safety Report 4897014-4 (Version None)
Quarter: 2005Q4

REPORT INFORMATION
  Report Type: 
  Country: None (occurrence: None)
  Receive Date: 20051228
  Receipt Date: 20050104
  Transmission Date: 20060501
  Serious: Yes (Hospitalization, Other)
  Sender: FDA-Public Use
  Company Number: USA050187483

PATIENT
  Age: 76 Year
  Sex: Female

DRUGS (2)
  1. HUMULIN L [Suspect]
     Dosage: 38 U DAY
  2. HUMULIN R [Suspect]

REACTIONS (2)
  - BLOOD GLUCOSE DECREASED [None]
  - THINKING ABNORMAL [None]
